FAERS Safety Report 11636601 (Version 13)
Quarter: 2015Q4

REPORT INFORMATION
  Report Type: Report from Study
  Country: CZ (occurrence: CZ)
  Receive Date: 20151016
  Receipt Date: 20151207
  Transmission Date: 20160304
  Serious: Yes (Life-Threatening, Hospitalization, Disabling, Other)
  Sender: FDA-Public Use
  Company Number: CZ-ABBVIE-15K-217-1481192-00

PATIENT
  Age: 66 Year
  Sex: Female
  Weight: 54 kg

DRUGS (3)
  1. HUMIRA [Suspect]
     Active Substance: ADALIMUMAB
     Indication: RHEUMATOID ARTHRITIS
     Route: 058
     Dates: start: 20130321, end: 20150819
  2. METHOTREXATE [Concomitant]
     Active Substance: METHOTREXATE
     Indication: RHEUMATOID ARTHRITIS
     Dates: start: 20120328, end: 20150819
  3. LEFLUNOMIDE. [Concomitant]
     Active Substance: LEFLUNOMIDE
     Indication: RHEUMATOID ARTHRITIS
     Dates: start: 20111221, end: 20150819

REACTIONS (5)
  - Dyspepsia [Unknown]
  - Bile duct stenosis [Unknown]
  - Jaundice cholestatic [Unknown]
  - Bile duct obstruction [Unknown]
  - Bile duct cancer stage IV [Not Recovered/Not Resolved]

NARRATIVE: CASE EVENT DATE: 2015
